FAERS Safety Report 14303084 (Version 2)
Quarter: 2021Q4

REPORT INFORMATION
  Report Type: Report from Study
  Country: FR (occurrence: FR)
  Receive Date: 20171219
  Receipt Date: 20211020
  Transmission Date: 20220303
  Serious: Yes (Other)
  Sender: FDA-Public Use
  Company Number: FR-SHIRE-FR201724438

PATIENT
  Sex: Female

DRUGS (16)
  1. METHOTREXATE [Suspect]
     Active Substance: METHOTREXATE
     Indication: Acute lymphocytic leukaemia
     Dosage: 11 MILLIGRAM
     Route: 037
  2. METHOTREXATE [Suspect]
     Active Substance: METHOTREXATE
     Dosage: 20 MILLIGRAM
     Route: 048
  3. DEXAMETHASONE [Suspect]
     Active Substance: DEXAMETHASONE
     Indication: Acute lymphocytic leukaemia
     Dosage: 4.5 MILLIGRAM
     Route: 048
     Dates: start: 20170816, end: 20170820
  4. DEXAMETHASONE [Suspect]
     Active Substance: DEXAMETHASONE
     Dosage: 4.5 MILLIGRAM
     Route: 048
     Dates: start: 20170717, end: 20170721
  5. DEXAMETHASONE [Suspect]
     Active Substance: DEXAMETHASONE
     Dosage: 4.5 MILLIGRAM
     Route: 048
     Dates: start: 20170913, end: 20170917
  6. PEGASPARGASE [Suspect]
     Active Substance: PEGASPARGASE
     Indication: Acute lymphocytic leukaemia
     Dosage: 2050 INTERNATIONAL UNIT, QD
     Route: 042
     Dates: start: 20170725, end: 20170725
  7. PEGASPARGASE [Suspect]
     Active Substance: PEGASPARGASE
     Dosage: 2050 INTERNATIONAL UNIT, QD
     Route: 042
     Dates: start: 20170823, end: 20170823
  8. PEGASPARGASE [Suspect]
     Active Substance: PEGASPARGASE
     Dosage: 2050 INTERNATIONAL UNIT, QD
     Route: 042
     Dates: start: 20170920, end: 20170920
  9. VINCRISTINE [Suspect]
     Active Substance: VINCRISTINE
     Indication: Acute lymphocytic leukaemia
     Dosage: 1.2 MILLIGRAM
     Route: 042
     Dates: start: 20170718, end: 20170718
  10. VINCRISTINE [Suspect]
     Active Substance: VINCRISTINE
     Dosage: 1.2 MILLIGRAM
     Route: 042
     Dates: start: 20170816, end: 20170816
  11. VINCRISTINE [Suspect]
     Active Substance: VINCRISTINE
     Dosage: 1.2 MILLIGRAM
     Route: 042
     Dates: start: 20170823, end: 20170823
  12. VINCRISTINE [Suspect]
     Active Substance: VINCRISTINE
     Dosage: 1.2 MILLIGRAM
     Route: 042
     Dates: start: 20170913, end: 20170913
  13. VINCRISTINE [Suspect]
     Active Substance: VINCRISTINE
     Dosage: 1.2 MILLIGRAM
     Route: 042
     Dates: start: 20170725, end: 20170725
  14. VINCRISTINE [Suspect]
     Active Substance: VINCRISTINE
     Dosage: 1.2 MILLIGRAM
     Route: 042
     Dates: start: 20170920, end: 20170920
  15. MERCAPTOPURINE [Suspect]
     Active Substance: MERCAPTOPURINE
     Indication: Acute lymphocytic leukaemia
     Dosage: 38 MILLIGRAM
     Route: 048
     Dates: start: 20170816, end: 20170906
  16. ONDANSETRON [Concomitant]
     Active Substance: ONDANSETRON
     Indication: Nausea
     Dosage: UNK

REACTIONS (1)
  - Drug hypersensitivity [Recovered/Resolved]

NARRATIVE: CASE EVENT DATE: 20170920
